FAERS Safety Report 15358829 (Version 8)
Quarter: 2025Q4

REPORT INFORMATION
  Report Type: Report from Study
  Country: US (occurrence: US)
  Receive Date: 20180906
  Receipt Date: 20251223
  Transmission Date: 20260118
  Serious: Yes (Other)
  Sender: TAKEDA
  Company Number: US-SHIRE-US201833538

PATIENT
  Age: 57 Year
  Sex: Female

DRUGS (3)
  1. HUMAN IMMUNOGLOBULIN G [Suspect]
     Active Substance: HUMAN IMMUNOGLOBULIN G
     Indication: Primary immunodeficiency syndrome
     Dosage: UNK
  2. HUMAN IMMUNOGLOBULIN G [Suspect]
     Active Substance: HUMAN IMMUNOGLOBULIN G
     Indication: Immunodeficiency common variable
  3. ENBREL [Concomitant]
     Active Substance: ETANERCEPT
     Indication: Product used for unknown indication
     Dosage: UNK

REACTIONS (9)
  - Rheumatoid arthritis [Unknown]
  - Impaired gastric emptying [Unknown]
  - Respiratory tract infection [Unknown]
  - Insurance issue [Unknown]
  - Product use issue [Unknown]
  - Weight decreased [Unknown]
  - Swelling [Unknown]
  - Pain [Unknown]
  - Malaise [Unknown]

NARRATIVE: CASE EVENT DATE: 20250219
